FAERS Safety Report 25118126 (Version 1)
Quarter: 2025Q1

REPORT INFORMATION
  Report Type: Report from Study
  Country: US (occurrence: US)
  Receive Date: 20250325
  Receipt Date: 20250325
  Transmission Date: 20250409
  Serious: Yes (Other)
  Sender: ALEXION PHARMACEUTICALS
  Company Number: US-AstraZeneca-CH-00830876A

PATIENT
  Weight: 93.4 kg

DRUGS (1)
  1. OLAPARIB [Suspect]
     Active Substance: OLAPARIB
     Indication: Breast cancer
     Dosage: 250 MILLIGRAM, BID

REACTIONS (15)
  - Oropharyngeal discomfort [Unknown]
  - Vomiting [Unknown]
  - Headache [Unknown]
  - Constipation [Unknown]
  - Hepatic lesion [Unknown]
  - Full blood count decreased [Unknown]
  - Onychoclasis [Unknown]
  - Fall [Unknown]
  - Face injury [Unknown]
  - Anxiety [Unknown]
  - Neuropathy peripheral [Unknown]
  - Feeling jittery [Unknown]
  - Decreased appetite [Unknown]
  - Nausea [Unknown]
  - Taste disorder [Unknown]
